FAERS Safety Report 5994871-5 (Version None)
Quarter: 2008Q4

REPORT INFORMATION
  Report Type: 
  Country: None (occurrence: None)
  Receive Date: 20081212
  Receipt Date: 20080912
  Transmission Date: 20090506
  Serious: No
  Sender: FDA-Public Use
  Company Number: US-ABBOTT-08P-163-0476792-00

PATIENT
  Sex: Male
  Weight: 149.82 kg

DRUGS (14)
  1. HUMIRA [Suspect]
     Indication: CROHN'S DISEASE
     Dosage: STARTING DOSE
     Route: 058
     Dates: start: 20080201
  2. HUMIRA [Suspect]
     Indication: COLITIS ULCERATIVE
     Route: 058
  3. HUMIRA [Suspect]
     Route: 058
     Dates: end: 20080905
  4. HUMIRA [Suspect]
     Route: 058
     Dates: start: 20080912
  5. METHOTREXATE [Concomitant]
     Indication: CROHN'S DISEASE
     Route: 048
  6. METFORMIN HCL [Concomitant]
     Indication: CROHN'S DISEASE
     Route: 048
  7. MESALAMINE [Concomitant]
     Indication: CROHN'S DISEASE
     Dosage: 2 TABS
     Route: 048
  8. KADINE-GENERIC MORPHINE SULFATE [Concomitant]
     Indication: PAIN
     Route: 048
  9. HYDROCODONE BITARTRATE [Concomitant]
     Indication: PAIN
     Dosage: 7.5/750 MG
     Route: 048
  10. PREGABALIN [Concomitant]
     Indication: PAIN
     Route: 048
  11. ESOMEPRAZOLE MAGNESIUM [Concomitant]
     Indication: GASTROOESOPHAGEAL REFLUX DISEASE
     Route: 048
  12. LEVOCETIRIZINE DIHYDROCHLORIDE [Concomitant]
     Indication: SEASONAL ALLERGY
     Route: 048
  13. SIMVASTATIN [Concomitant]
     Indication: BLOOD CHOLESTEROL INCREASED
     Route: 048
  14. CELECOXIB [Concomitant]
     Indication: PAIN
     Route: 048

REACTIONS (5)
  - BACK PAIN [None]
  - DRUG INEFFECTIVE [None]
  - GASTROINTESTINAL DISORDER [None]
  - NAUSEA [None]
  - PAIN IN EXTREMITY [None]
